FAERS Safety Report 9633359 (Version 1)
Quarter: 2013Q4

REPORT INFORMATION
  Report Type: Spontaneous
  Country: US (occurrence: US)
  Receive Date: 20131021
  Receipt Date: 20131021
  Transmission Date: 20140711
  Serious: No
  Sender: FDA-Public Use
  Company Number: US-PFIZER INC-2013297907

PATIENT
  Age: 51 Year
  Sex: Male
  Weight: 148 kg

DRUGS (3)
  1. CHANTIX [Suspect]
     Indication: SMOKING CESSATION THERAPY
     Dosage: UNK
     Route: 048
     Dates: start: 2009, end: 201302
  2. CYMBALTA [Concomitant]
     Indication: ARTHRITIS
     Dosage: 30 MG, DAILY
  3. CYMBALTA [Concomitant]
     Indication: BACK PAIN

REACTIONS (5)
  - Abnormal dreams [Recovered/Resolved]
  - Blood cholesterol increased [Unknown]
  - Blood testosterone decreased [Unknown]
  - Blood glucose increased [Unknown]
  - Intentional drug misuse [Unknown]
